FAERS Safety Report 6824479-0 (Version None)
Quarter: 2010Q3

REPORT INFORMATION
  Report Type: 
  Country: None (occurrence: None)
  Receive Date: 20100708
  Receipt Date: 20061030
  Transmission Date: 20110219
  Serious: No
  Sender: FDA-Public Use
  Company Number: US-PFIZER INC-2006134876

PATIENT
  Sex: Female
  Weight: 68.04 kg

DRUGS (3)
  1. CHANTIX [Suspect]
     Indication: SMOKING CESSATION THERAPY
     Dates: start: 20060927
  2. AVALIDE [Concomitant]
  3. VITAMIN E [Concomitant]

REACTIONS (3)
  - NAUSEA [None]
  - POLLAKIURIA [None]
  - VERTIGO [None]
